FAERS Safety Report 18436589 (Version 2)
Quarter: 2020Q4

REPORT INFORMATION
  Report Type: Spontaneous
  Country: US (occurrence: US)
  Receive Date: 20201028
  Receipt Date: 20201202
  Transmission Date: 20210114
  Serious: Yes (Other)
  Sender: FDA-Public Use
  Company Number: US-009507513-2010USA010310

PATIENT
  Age: 50 Year
  Sex: Male

DRUGS (3)
  1. KEYTRUDA [Suspect]
     Active Substance: PEMBROLIZUMAB
     Indication: NEUROENDOCRINE TUMOUR
     Dosage: UNK
     Route: 042
     Dates: start: 201903, end: 202002
  2. ALIMTA [Suspect]
     Active Substance: PEMETREXED DISODIUM
     Indication: NEUROENDOCRINE TUMOUR
     Dosage: UNK
     Dates: start: 201903, end: 20190801
  3. CARBOPLATIN. [Suspect]
     Active Substance: CARBOPLATIN
     Indication: NEUROENDOCRINE TUMOUR
     Dosage: UNK
     Dates: start: 201903, end: 201905

REACTIONS (4)
  - Product use in unapproved indication [Unknown]
  - Ear pain [Unknown]
  - Deafness [Unknown]
  - Adverse event [Unknown]

NARRATIVE: CASE EVENT DATE: 201903
